FAERS Safety Report 12601661 (Version 1)
Quarter: 2016Q3

REPORT INFORMATION
  Report Type: Spontaneous
  Country: US (occurrence: None)
  Receive Date: 20160727
  Receipt Date: 20160727
  Transmission Date: 20161109
  Serious: No
  Sender: FDA-Public Use
  Company Number: None

PATIENT
  Age: 82 Year
  Sex: Female

DRUGS (9)
  1. CALCIUM ACETATE. [Concomitant]
     Active Substance: CALCIUM ACETATE
  2. LIDOCAINE. [Concomitant]
     Active Substance: LIDOCAINE
  3. METOPROLOL TARTRATE. [Concomitant]
     Active Substance: METOPROLOL TARTRATE
  4. MULTIVITAMIN [Concomitant]
     Active Substance: VITAMINS
  5. COLCHICINE. [Concomitant]
     Active Substance: COLCHICINE
  6. LANSOPRAZOLE. [Suspect]
     Active Substance: LANSOPRAZOLE
     Indication: GASTROOESOPHAGEAL REFLUX DISEASE
     Route: 048
     Dates: start: 20160620, end: 20160620
  7. ALLOPURINOL. [Concomitant]
     Active Substance: ALLOPURINOL
  8. VANCOMYCIN [Concomitant]
     Active Substance: VANCOMYCIN
  9. SIMETHICONE (DIMETHICONE) [Concomitant]
     Active Substance: DIMETHICONE

REACTIONS (1)
  - Blood sodium decreased [None]

NARRATIVE: CASE EVENT DATE: 20160620
